FAERS Safety Report 5671199-4 (Version None)
Quarter: 2008Q1

REPORT INFORMATION
  Report Type: 
  Country: None (occurrence: None)
  Receive Date: 20080318
  Receipt Date: 20080307
  Transmission Date: 20080703
  Serious: Yes (Other)
  Sender: FDA-Public Use
  Company Number: NL-ELI_LILLY_AND_COMPANY-NL200803002424

PATIENT
  Age: 10 Year
  Sex: Female

DRUGS (4)
  1. STRATTERA [Suspect]
     Dosage: 25 MG, UNK
     Route: 048
     Dates: start: 20050601
  2. STRATTERA [Suspect]
     Dosage: 40 MG, UNKNOWN
     Route: 048
     Dates: start: 20071001
  3. STRATTERA [Suspect]
     Dosage: 18 MG, EACH MORNING
     Route: 048
  4. STRATTERA [Suspect]
     Dosage: 18 MG, EACH EVENING
     Route: 048

REACTIONS (3)
  - ABDOMINAL PAIN [None]
  - RAYNAUD'S PHENOMENON [None]
  - SKIN DISCOLOURATION [None]
